FAERS Safety Report 25870428 (Version 3)
Quarter: 2025Q4

REPORT INFORMATION
  Report Type: Report from Study
  Country: US (occurrence: US)
  Receive Date: 20251001
  Receipt Date: 20251115
  Transmission Date: 20260118
  Serious: No
  Sender: DR REDDYS
  Company Number: US-DRL-USA-USA/2025/09/014628

PATIENT
  Age: 8 Year
  Sex: Female
  Weight: 38.29 kg

DRUGS (4)
  1. JAVYGTOR [Suspect]
     Active Substance: SAPROPTERIN DIHYDROCHLORIDE
     Indication: Phenylketonuria
     Dosage: TOTAL DOSE: 600 MG
     Route: 048
     Dates: start: 202405
  2. JAVYGTOR [Suspect]
     Active Substance: SAPROPTERIN DIHYDROCHLORIDE
     Dosage: TOTAL DOSE: 800 MG
     Route: 048
     Dates: start: 202508, end: 20250910
  3. JAVYGTOR [Suspect]
     Active Substance: SAPROPTERIN DIHYDROCHLORIDE
     Indication: Phenylketonuria
     Dosage: TOTAL DOSE: 600 MG
     Route: 048
     Dates: start: 202405
  4. JAVYGTOR [Suspect]
     Active Substance: SAPROPTERIN DIHYDROCHLORIDE
     Dosage: TOTAL DOSE: 800 MG
     Route: 048
     Dates: start: 202508, end: 20250910

REACTIONS (3)
  - Tic [Recovered/Resolved]
  - Overdose [Unknown]
  - Product prescribing error [Unknown]

NARRATIVE: CASE EVENT DATE: 20250801
